FAERS Safety Report 14068822 (Version 3)
Quarter: 2018Q3

REPORT INFORMATION
  Report Type: Spontaneous
  Country: JP (occurrence: JP)
  Receive Date: 20171010
  Receipt Date: 20180705
  Transmission Date: 20181010
  Serious: Yes (Other)
  Sender: FDA-Public Use
  Company Number: JP-009507513-1710JPN000629J

PATIENT
  Age: 78 Year
  Sex: Male
  Weight: 55 kg

DRUGS (5)
  1. KEYTRUDA [Suspect]
     Active Substance: PEMBROLIZUMAB
     Dosage: 200 MG, Q3W
     Route: 041
     Dates: start: 20180316, end: 20180502
  2. KEYTRUDA [Suspect]
     Active Substance: PEMBROLIZUMAB
     Dosage: 200 MG, Q3W
     Route: 041
     Dates: start: 20171222, end: 20180202
  3. KEYTRUDA [Suspect]
     Active Substance: PEMBROLIZUMAB
     Indication: SQUAMOUS CELL CARCINOMA OF LUNG
     Dosage: 200 MG, Q3W
     Route: 041
     Dates: start: 20170519, end: 20170519
  4. KEYTRUDA [Suspect]
     Active Substance: PEMBROLIZUMAB
     Dosage: 200 MG, Q3W
     Route: 041
     Dates: start: 20170826, end: 20170826
  5. KEYTRUDA [Suspect]
     Active Substance: PEMBROLIZUMAB
     Dosage: 200 MG, Q3W
     Route: 041
     Dates: start: 20170929, end: 20171110

REACTIONS (1)
  - Lower respiratory tract infection [Recovering/Resolving]

NARRATIVE: CASE EVENT DATE: 20170602
